FAERS Safety Report 8715875 (Version 6)
Quarter: 2014Q3

REPORT INFORMATION
  Report Type: Report from Study
  Country: FR (occurrence: FR)
  Receive Date: 20120809
  Receipt Date: 20140923
  Transmission Date: 20150326
  Serious: Yes (Hospitalization, Other)
  Sender: FDA-Public Use
  Company Number: FR-ASTRAZENECA-2011SE13037

PATIENT
  Age: 759 Month
  Sex: Male
  Weight: 89 kg

DRUGS (5)
  1. MAG 2 [Concomitant]
     Active Substance: MAGNESIUM CHLORIDE
     Route: 048
     Dates: end: 201208
  2. PREVISCAN [Concomitant]
     Active Substance: FLUINDIONE
     Indication: ATRIAL FIBRILLATION
     Dosage: VARIABLES DOSES ACCORDING TO INR
     Route: 048
     Dates: start: 2010, end: 201208
  3. CAPRELSA [Suspect]
     Active Substance: VANDETANIB
     Indication: MEDULLARY THYROID CANCER
     Route: 048
     Dates: start: 20101219, end: 20120822
  4. COAPROVEL [Concomitant]
     Active Substance: HYDROCHLOROTHIAZIDE\IRBESARTAN
     Indication: HYPERTENSION
     Dosage: 300 MG /25 MG
     Route: 048
  5. RYTHMOL [Concomitant]
     Active Substance: PROPAFENONE HYDROCHLORIDE
     Indication: ATRIAL FIBRILLATION
     Route: 048

REACTIONS (7)
  - Optic ischaemic neuropathy [Not Recovered/Not Resolved]
  - Hypertension [Recovering/Resolving]
  - Diarrhoea [Not Recovered/Not Resolved]
  - Peritonitis [Recovered/Resolved]
  - Dysgeusia [Unknown]
  - Diverticular perforation [Recovered/Resolved with Sequelae]
  - Folliculitis [Recovering/Resolving]

NARRATIVE: CASE EVENT DATE: 201101
